FAERS Safety Report 5150459-X (Version None)
Quarter: 2006Q4

REPORT INFORMATION
  Report Type: 
  Country: None (occurrence: None)
  Receive Date: 20061108
  Receipt Date: 20061106
  Transmission Date: 20070319
  Serious: Yes (Hospitalization, Other)
  Sender: FDA-Public Use
  Company Number: TCI2006A03890

PATIENT
  Age: 38 Year
  Sex: Female

DRUGS (3)
  1. LEUPLIN FOR INJECTION KIT1.88 (LEUPROLINE ACETATE) (INJECTION) [Suspect]
     Indication: ENDOMETRIOSIS
     Dosage: 1.88 MG (1.88 MG, 1 IN 28 D), SUBCUTANEOUS
     Route: 058
     Dates: start: 20050722, end: 20050819
  2. FERRICON (CIDEFERRON) (INJECTION) [Concomitant]
  3. FEREDAIM (FERROUS SODIUM CITRATE) (TABLETS) [Concomitant]

REACTIONS (1)
  - UTERINE CANCER [None]
